FAERS Safety Report 13901387 (Version 1)
Quarter: 2017Q3

REPORT INFORMATION
  Report Type: Spontaneous
  Country: CA (occurrence: CA)
  Receive Date: 20170824
  Receipt Date: 20170824
  Transmission Date: 20171127
  Serious: Yes (Hospitalization, Other)
  Sender: FDA-Public Use
  Company Number: CA-APOTEX-2017AP017265

PATIENT
  Age: 49 Year
  Sex: Female

DRUGS (3)
  1. APO-RISPERIDONE [Suspect]
     Active Substance: RISPERIDONE
     Indication: PRODUCT USED FOR UNKNOWN INDICATION
     Dosage: 6 MG, UNK
     Route: 065
  2. APO-AMLODIPINE [Suspect]
     Active Substance: AMLODIPINE BESYLATE
     Indication: PRODUCT USED FOR UNKNOWN INDICATION
     Dosage: 150 MG, UNK
     Route: 065
  3. APO-ESCITALOPRAM [Suspect]
     Active Substance: ESCITALOPRAM OXALATE
     Indication: PRODUCT USED FOR UNKNOWN INDICATION
     Dosage: 60 MG, UNK
     Route: 065

REACTIONS (18)
  - Optic atrophy [Not Recovered/Not Resolved]
  - Renal tubular necrosis [Recovering/Resolving]
  - Electrocardiogram T wave inversion [Unknown]
  - Electrocardiogram P wave abnormal [Unknown]
  - Electrocardiogram U wave present [Unknown]
  - Intentional overdose [Unknown]
  - Electrocardiogram ST segment depression [Unknown]
  - Optic nerve injury [Not Recovered/Not Resolved]
  - Blindness [Not Recovered/Not Resolved]
  - Cerebral infarction [Unknown]
  - Pulmonary oedema [Unknown]
  - Hypoglycaemia [Unknown]
  - Hypokalaemia [Unknown]
  - Depressed level of consciousness [Recovered/Resolved]
  - CSF pressure increased [Unknown]
  - Electrocardiogram T wave amplitude decreased [Unknown]
  - Shock [Recovered/Resolved]
  - Anuria [Recovering/Resolving]
